FAERS Safety Report 24912192 (Version 1)
Quarter: 2025Q1

REPORT INFORMATION
  Report Type: Spontaneous
  Country: US (occurrence: US)
  Receive Date: 20250131
  Receipt Date: 20250131
  Transmission Date: 20250409
  Serious: No
  Sender: SANOFI AVENTIS
  Company Number: US-SA-2025SA029711

PATIENT
  Age: 10 Year
  Sex: Male
  Weight: 31.75 kg

DRUGS (2)
  1. DUPIXENT [Suspect]
     Active Substance: DUPILUMAB
     Indication: Eosinophilic oesophagitis
     Dosage: 300 MG, QOW
     Route: 058
  2. GAS-X [Concomitant]
     Active Substance: DIMETHICONE

REACTIONS (1)
  - Influenza [Recovering/Resolving]
